FAERS Safety Report 7212803-9 (Version None)
Quarter: 2010Q4

REPORT INFORMATION
  Report Type: 
  Country: None (occurrence: None)
  Receive Date: 20101126
  Receipt Date: 20101018
  Transmission Date: 20110411
  Serious: No
  Sender: FDA-Public Use
  Company Number: 316771

PATIENT
  Age: 73 Year
  Sex: Female

DRUGS (3)
  1. VICTOZA [Suspect]
     Indication: TYPE 2 DIABETES MELLITUS
     Dosage: 1.2 MG, QD, SUBCUTANEOUS
     Route: 058
     Dates: start: 20100901
  2. VICTOZA [Suspect]
     Dosage: SUBCUTANEOUS
     Route: 058
  3. LISINOPRIL [Concomitant]

REACTIONS (3)
  - HEART RATE ABNORMAL [None]
  - OROPHARYNGEAL PAIN [None]
  - PNEUMONIA [None]
